FAERS Safety Report 4294178-0 (Version None)
Quarter: 2004Q1

REPORT INFORMATION
  Report Type: 
  Country: None (occurrence: None)
  Receive Date: 20040213
  Receipt Date: 20040204
  Transmission Date: 20041129
  Serious: Yes (Hospitalization, Other)
  Sender: FDA-Public Use
  Company Number: GB-BRISTOL-MYERS SQUIBB COMPANY-12497087

PATIENT
  Age: 62 Year
  Sex: Male

DRUGS (5)
  1. LIPOSTAT [Suspect]
     Indication: MYOCARDIAL INFARCTION
     Route: 048
     Dates: start: 20040126, end: 20040126
  2. ACETYLSALICYLIC ACID SRT [Concomitant]
     Dates: start: 20040126
  3. ATENOLOL [Concomitant]
     Dates: start: 20040126
  4. TEMAZEPAM [Concomitant]
     Dates: start: 20040126
  5. PERINDOPRIL [Concomitant]
     Dates: start: 20040126

REACTIONS (2)
  - MYOSITIS [None]
  - VASCULITIS [None]
